FAERS Safety Report 23616153 (Version 1)
Quarter: 2024Q1

REPORT INFORMATION
  Report Type: Spontaneous
  Country: US (occurrence: None)
  Receive Date: 20240308
  Receipt Date: 20240308
  Transmission Date: 20240410
  Serious: No
  Sender: FDA-Public Use
  Company Number: None

PATIENT
  Age: 67 Year
  Sex: Female
  Weight: 90 kg

DRUGS (2)
  1. BEYFORTUS [Suspect]
     Active Substance: NIRSEVIMAB-ALIP
     Route: 030
     Dates: start: 20240308, end: 20240308
  2. Spikevax [Concomitant]

REACTIONS (3)
  - Product use issue [None]
  - Therapy change [None]
  - Intercepted product prescribing error [None]

NARRATIVE: CASE EVENT DATE: 20240308
